FAERS Safety Report 13830282 (Version 4)
Quarter: 2018Q4

REPORT INFORMATION
  Report Type: Report from Study
  Country: US (occurrence: US)
  Receive Date: 20170803
  Receipt Date: 20181024
  Transmission Date: 20190204
  Serious: No
  Sender: FDA-Public Use
  Company Number: US-SA-2017SA122216

PATIENT
  Age: 77 Year
  Sex: Male

DRUGS (4)
  1. GLUCOPHAGE [Concomitant]
     Active Substance: METFORMIN HYDROCHLORIDE
     Dosage: UNK UNK,UNK
  2. ALIROCUMAB [Suspect]
     Active Substance: ALIROCUMAB
     Indication: BLOOD CHOLESTEROL
     Dosage: 2 DF, QM
     Route: 058
  3. GLYBURIDE. [Concomitant]
     Active Substance: GLYBURIDE
     Dosage: UNK UNK,UNK
  4. ALIROCUMAB [Suspect]
     Active Substance: ALIROCUMAB
     Dosage: UNK, QOW
     Route: 058
     Dates: start: 20181002

REACTIONS (6)
  - Cough [Recovered/Resolved]
  - Urticaria [Not Recovered/Not Resolved]
  - Influenza like illness [Recovered/Resolved]
  - Pruritus [Recovering/Resolving]
  - Weight decreased [Unknown]
  - Discomfort [Not Recovered/Not Resolved]
